FAERS Safety Report 4782181-3 (Version None)
Quarter: 2005Q3

REPORT INFORMATION
  Report Type: 
  Country: None (occurrence: None)
  Receive Date: 20050927
  Receipt Date: 20050823
  Transmission Date: 20060218
  Serious: No
  Sender: FDA-Public Use
  Company Number: USA0508106221

PATIENT
  Age: 21 Year
  Sex: Female

DRUGS (3)
  1. STRATTERA [Suspect]
     Indication: ATTENTION DEFICIT/HYPERACTIVITY DISORDER
     Dosage: 60 MG
     Dates: start: 20050712
  2. LAMICTAL [Concomitant]
  3. CLONAZEPAM [Concomitant]

REACTIONS (4)
  - ACNE [None]
  - MENSTRUAL DISORDER [None]
  - MOOD SWINGS [None]
  - MUSCLE SPASMS [None]
